FAERS Safety Report 14820749 (Version 2)
Quarter: 2018Q2

REPORT INFORMATION
  Report Type: Spontaneous
  Country: MX (occurrence: MX)
  Receive Date: 20180427
  Receipt Date: 20180601
  Transmission Date: 20180711
  Serious: Yes (Other)
  Sender: FDA-Public Use
  Company Number: MX-ROCHE-2103443

PATIENT
  Age: 30 Year
  Sex: Male
  Weight: 77.5 kg

DRUGS (5)
  1. XOLAIR [Suspect]
     Active Substance: OMALIZUMAB
     Indication: ASTHMA
     Dosage: 2 OT
     Route: 058
     Dates: start: 20170804
  2. XOLAIR [Suspect]
     Active Substance: OMALIZUMAB
     Route: 058
     Dates: start: 20170922
  3. XOLAIR [Suspect]
     Active Substance: OMALIZUMAB
     Route: 058
     Dates: start: 20171006
  4. XOLAIR [Suspect]
     Active Substance: OMALIZUMAB
     Route: 058
     Dates: start: 20170901
  5. XOLAIR [Suspect]
     Active Substance: OMALIZUMAB
     Route: 058
     Dates: start: 20180328

REACTIONS (8)
  - Intentional product use issue [Unknown]
  - Asthmatic crisis [Unknown]
  - Nasal disorder [Unknown]
  - Eye symptom [Unknown]
  - Condition aggravated [Unknown]
  - Dermatitis [Unknown]
  - Face oedema [Unknown]
  - Asthenia [Unknown]

NARRATIVE: CASE EVENT DATE: 20171019
